FAERS Safety Report 8762047 (Version 2)
Quarter: 2012Q4

REPORT INFORMATION
  Report Type: 
  Country: US (occurrence: US)
  Receive Date: 20120830
  Receipt Date: 20121003
  Transmission Date: 20130627
  Serious: Yes (Other)
  Sender: FDA-Public Use
  Company Number: US-PFIZER INC-2012208826

PATIENT
  Age: 88 Year
  Sex: Female
  Weight: 54.4 kg

DRUGS (12)
  1. ZYVOX [Suspect]
     Indication: ENTEROCOCCAL INFECTION
     Dosage: UNK
     Route: 048
     Dates: start: 20120801, end: 20120802
  2. ZYVOX [Suspect]
     Dosage: UNK
     Route: 048
     Dates: start: 20120804, end: 20120805
  3. LINEZOLID [Suspect]
     Indication: ENTEROCOCCAL INFECTION
     Dosage: UNK
     Route: 042
     Dates: start: 20120803, end: 20120803
  4. TYLENOL [Concomitant]
     Dosage: 650 mg, as needed
  5. NEURONTIN [Concomitant]
     Dosage: 100 mg, 3x/day
  6. CYANOCOBALAMIN [Concomitant]
     Dosage: 1000 ug, daily
  7. LANTUS [Concomitant]
     Dosage: 15 IU, daily
  8. LISINOPRIL [Concomitant]
     Dosage: 20 mg, daily
  9. METFORMIN [Concomitant]
     Dosage: 500 mg, 2x/day
  10. METOPROLOL SUCCINATE [Concomitant]
     Dosage: 25 mg, 3x/day
  11. TIMOLOL MALEATE [Concomitant]
     Dosage: 1 Gtt, daily
     Route: 047
  12. CRESTOR [Concomitant]
     Dosage: 5 mg, daily

REACTIONS (8)
  - Enterococcal infection [Not Recovered/Not Resolved]
  - Eye pain [Recovered/Resolved]
  - Ear pain [Recovered/Resolved]
  - Toothache [Recovered/Resolved]
  - Back pain [Recovered/Resolved]
  - Flank pain [Recovered/Resolved]
  - Breast pain [Recovered/Resolved]
  - Decreased appetite [Recovered/Resolved]
